FAERS Safety Report 5930015-3 (Version None)
Quarter: 2008Q4

REPORT INFORMATION
  Report Type: 
  Country: None (occurrence: None)
  Receive Date: 20081024
  Receipt Date: 20081020
  Transmission Date: 20090506
  Serious: Yes (Death, Other)
  Sender: FDA-Public Use
  Company Number: AU-CELGENEUS-008-20785-08100158

PATIENT
  Sex: Female

DRUGS (1)
  1. THALIDOMIDE [Suspect]
     Indication: PYODERMA GANGRENOSUM
     Route: 048
     Dates: start: 20040202, end: 20080523

REACTIONS (3)
  - B-CELL TYPE ACUTE LEUKAEMIA [None]
  - DISEASE PROGRESSION [None]
  - OPPORTUNISTIC INFECTION [None]
